FAERS Safety Report 23802988 (Version 1)
Quarter: 2024Q2

REPORT INFORMATION
  Report Type: Spontaneous
  Country: GB (occurrence: GB)
  Receive Date: 20240501
  Receipt Date: 20240501
  Transmission Date: 20240716
  Serious: Yes (Other)
  Sender: FDA-Public Use
  Company Number: GB-ORGANON-O2404GBR003426

PATIENT
  Sex: Female

DRUGS (1)
  1. NEXPLANON [Suspect]
     Active Substance: ETONOGESTREL
     Dosage: 1 IMPLANT
     Route: 059
     Dates: start: 20231208

REACTIONS (5)
  - Brain neoplasm [Unknown]
  - Headache [Unknown]
  - Nausea [Unknown]
  - Pituitary enlargement [Unknown]
  - Thyroid disorder [Not Recovered/Not Resolved]
